FAERS Safety Report 9325127 (Version 2)
Quarter: 2013Q3

REPORT INFORMATION
  Report Type: Spontaneous
  Country: AR (occurrence: AR)
  Receive Date: 20130603
  Receipt Date: 20130828
  Transmission Date: 20140515
  Serious: Yes (Hospitalization, Other)
  Sender: FDA-Public Use
  Company Number: AR-B.I. PHARMACEUTICALS,INC./RIDGEFIELD-2013-RA-00132RA

PATIENT
  Age: 30 Year
  Sex: Female
  Weight: 48 kg

DRUGS (6)
  1. PRADAXA [Suspect]
     Indication: DEEP VEIN THROMBOSIS
     Dosage: 300 MG
     Route: 048
     Dates: start: 20130320
  2. UNFRACTIONATED HEPARIN [Concomitant]
     Indication: DEEP VEIN THROMBOSIS
     Route: 042
     Dates: start: 201305, end: 20130517
  3. ENOXAPARIN [Concomitant]
     Indication: DEEP VEIN THROMBOSIS
     Dosage: 80 MG
     Route: 058
     Dates: start: 201304, end: 201304
  4. ACENOCUMAROL [Concomitant]
     Indication: DEEP VEIN THROMBOSIS
     Route: 058
     Dates: start: 201304, end: 201304
  5. STREPTOKINASE [Concomitant]
     Indication: DEEP VEIN THROMBOSIS
     Route: 042
     Dates: start: 201305, end: 201305
  6. BIVALIRUDIN [Concomitant]
     Indication: DEEP VEIN THROMBOSIS
     Route: 042
     Dates: start: 201305, end: 20130517

REACTIONS (10)
  - Jugular vein thrombosis [Not Recovered/Not Resolved]
  - Venous thrombosis [Not Recovered/Not Resolved]
  - Transient ischaemic attack [Unknown]
  - Intestinal perforation [Unknown]
  - Ischaemia [Unknown]
  - Cerebrovascular accident [Unknown]
  - Mesenteric artery thrombosis [Unknown]
  - Adenocarcinoma [Unknown]
  - Off label use [Unknown]
  - Cyanosis [Unknown]
